FAERS Safety Report 7880389-1 (Version None)
Quarter: 2011Q4

REPORT INFORMATION
  Report Type: 
  Country: None (occurrence: None)
  Receive Date: 20111101
  Receipt Date: 20111020
  Transmission Date: 20120403
  Serious: Yes (Hospitalization, Other)
  Sender: FDA-Public Use
  Company Number: PHHY2011SI93151

PATIENT
  Age: 60 Year
  Sex: Male

DRUGS (1)
  1. ONBREZ [Suspect]
     Indication: CHRONIC OBSTRUCTIVE PULMONARY DISEASE
     Dosage: 150 UG, QD

REACTIONS (6)
  - ASPHYXIA [None]
  - HYPOXIA [None]
  - BRONCHOSPASM PARADOXICAL [None]
  - DYSPNOEA [None]
  - APNOEIC ATTACK [None]
  - NEUROLOGICAL SYMPTOM [None]
